FAERS Safety Report 22154588 (Version 1)
Quarter: 2023Q1

REPORT INFORMATION
  Report Type: Spontaneous
  Country: ES (occurrence: ES)
  Receive Date: 20230330
  Receipt Date: 20230330
  Transmission Date: 20230417
  Serious: Yes (Other)
  Sender: FDA-Public Use
  Company Number: ES-AEMPS-618428

PATIENT
  Age: 70 Year
  Sex: Female

DRUGS (2)
  1. ACETAMINOPHEN [Suspect]
     Active Substance: ACETAMINOPHEN
     Indication: Pyrexia
     Dosage: 1 GRAM, 3 TIMES A DAY (1G/8H)
     Route: 048
     Dates: start: 20190921, end: 20190930
  2. METAMIZOLE [Concomitant]
     Active Substance: METAMIZOLE
     Indication: Pyrexia
     Dosage: 575 MILLIGRAM, 3 TIMES A DAY (8 HRS)
     Route: 048
     Dates: start: 20190918, end: 20190920

REACTIONS (1)
  - Hepatitis cholestatic [Recovered/Resolved]

NARRATIVE: CASE EVENT DATE: 20190924
